FAERS Safety Report 9542899 (Version 1)
Quarter: 2013Q3

REPORT INFORMATION
  Report Type: Spontaneous
  Country: CH (occurrence: CH)
  Receive Date: 20130923
  Receipt Date: 20130923
  Transmission Date: 20140515
  Serious: Yes (Life-Threatening, Hospitalization)
  Sender: FDA-Public Use
  Company Number: CH-ASTRAZENECA-2013SE69765

PATIENT
  Age: 89 Year
  Sex: Female

DRUGS (5)
  1. DISOPRIVAN [Suspect]
     Indication: ANAESTHESIA
     Dosage: ONCE/SINGLE ADMINISTRATION
     Route: 040
     Dates: start: 20130412, end: 20130412
  2. PARACETAMOL SINTETICA [Suspect]
     Route: 040
     Dates: start: 20130412
  3. ZINACEF [Suspect]
     Indication: PROPHYLACTIC CHEMOTHERAPY
     Route: 040
     Dates: start: 20130412, end: 20130412
  4. VOLUVEN [Suspect]
     Route: 041
     Dates: start: 20130412, end: 20130412
  5. BRIDION [Suspect]
     Indication: ANAESTHESIA REVERSAL
     Route: 040
     Dates: start: 20130412, end: 20130412

REACTIONS (4)
  - Aphasia [Recovering/Resolving]
  - Tongue oedema [Recovering/Resolving]
  - Angioedema [Recovering/Resolving]
  - Hypersensitivity [Recovering/Resolving]
